FAERS Safety Report 6135028-7 (Version None)
Quarter: 2009Q1

REPORT INFORMATION
  Report Type: 
  Country: None (occurrence: None)
  Receive Date: 20090325
  Receipt Date: 20090308
  Transmission Date: 20090719
  Serious: Yes (Hospitalization, Disabling, Other)
  Sender: FDA-Public Use
  Company Number: 2005S1004575

PATIENT
  Age: 56 Year
  Sex: Female
  Weight: 58.9676 kg

DRUGS (10)
  1. PHOSPHOSODA GINGR LEMON [Suspect]
     Indication: COLONOSCOPY
     Dosage: 90 ML; TOTAL; PO
     Route: 048
     Dates: start: 20040321, end: 20040322
  2. PREMARIN [Concomitant]
  3. ESOMEPRAZOLE MAGNESIUM [Concomitant]
  4. BUPROPION HYDROCHLORIDE [Concomitant]
  5. ATENOLOL [Concomitant]
  6. CALCIUM [Concomitant]
  7. PROPOXYPHENE NAPSYLATE [Concomitant]
  8. ACETAMINOPHEN [Concomitant]
  9. ALLEGRA D /01367401/ [Concomitant]
  10. VITAMINS /90003601/ [Concomitant]

REACTIONS (9)
  - ANOREXIA [None]
  - DEHYDRATION [None]
  - DIARRHOEA [None]
  - HYPERTENSION [None]
  - ILEAL ULCER [None]
  - LARGE INTESTINAL ULCER [None]
  - NEPHROCALCINOSIS [None]
  - RENAL FAILURE CHRONIC [None]
  - RENAL TUBULAR NECROSIS [None]
